FAERS Safety Report 12138837 (Version 2)
Quarter: 2016Q2

REPORT INFORMATION
  Report Type: Report from Study
  Country: US (occurrence: US)
  Receive Date: 20160302
  Receipt Date: 20160405
  Transmission Date: 20160815
  Serious: Yes (Hospitalization)
  Sender: FDA-Public Use
  Company Number: US-VERTEX PHARMACEUTICALS-2016-001168

PATIENT
  Age: 16 Year
  Sex: Male

DRUGS (19)
  1. CORTEF [Concomitant]
     Active Substance: HYDROCORTISONE
     Dosage: 2 DF, TID
     Dates: start: 20160212, end: 20160214
  2. CAYSTON [Concomitant]
     Active Substance: AZTREONAM
     Indication: CYSTIC FIBROSIS
     Dosage: 1 ML, TID, ALTERNATE ON AND OFF MONTHS
  3. ATARAX [Concomitant]
     Active Substance: HYDROXYZINE\HYDROXYZINE HYDROCHLORIDE
     Indication: CYSTIC FIBROSIS
     Dosage: 1 DF, QD
     Route: 048
  4. SINGULAIR [Concomitant]
     Active Substance: MONTELUKAST SODIUM
     Indication: CYSTIC FIBROSIS
     Dosage: 1 DF, QD
     Route: 048
  5. SODIUM CHLORIDE. [Concomitant]
     Active Substance: SODIUM CHLORIDE
     Indication: CYSTIC FIBROSIS
     Dosage: 4 ML, BID
     Route: 055
  6. FLAXSEED [Concomitant]
     Active Substance: FLAX SEED
     Dosage: 5 ML, QD
     Route: 048
  7. ZOFRAN [Concomitant]
     Active Substance: ONDANSETRON HYDROCHLORIDE
     Indication: NAUSEA
     Dosage: 1 DF, TID
     Route: 048
  8. CORTEF [Concomitant]
     Active Substance: HYDROCORTISONE
     Dosage: 3 DF, TID
     Dates: start: 20160209, end: 20160211
  9. ZINC SULFATE [Concomitant]
     Active Substance: ZINC SULFATE\ZINC SULFATE ANHYDROUS
     Indication: CYSTIC FIBROSIS
     Dosage: 1 DF, QD
     Route: 048
  10. CREON [Concomitant]
     Active Substance: PANCRELIPASE AMYLASE\PANCRELIPASE LIPASE\PANCRELIPASE PROTEASE
     Indication: CYSTIC FIBROSIS
     Dosage: 4 CAPSULES TID, WITH MEALS. 4 CAPSULES WITH SNACKS
     Route: 048
  11. AMITIZA [Concomitant]
     Active Substance: LUBIPROSTONE
     Indication: CYSTIC FIBROSIS
     Dosage: 1 DF, BID
     Route: 048
  12. FLONASE [Concomitant]
     Active Substance: FLUTICASONE PROPIONATE
     Dosage: 2 SPRAYS TO EACH NOSTRILS, QD
     Route: 055
  13. TOBI [Concomitant]
     Active Substance: TOBRAMYCIN
     Dosage: 5 ML, QD, ALTERANTE EVERY 28 DAYS WITH CAYSTON
     Route: 055
  14. RETIN-A [Concomitant]
     Active Substance: TRETINOIN
     Indication: CYSTIC FIBROSIS
     Dosage: APPLY TO AFFECTED AREA AT BED TIMES, QD
     Route: 061
  15. AQUADEKS [Concomitant]
     Active Substance: MINERALS\VITAMINS
     Dosage: 1 DF, BID
     Route: 048
  16. ORKAMBI [Suspect]
     Active Substance: IVACAFTOR\LUMACAFTOR
     Indication: CYSTIC FIBROSIS
     Dosage: 400/250 MG, BID
     Route: 048
     Dates: start: 20150814
  17. PULMOZYME [Concomitant]
     Active Substance: DORNASE ALFA
     Indication: CYSTIC FIBROSIS
     Dosage: 2.5 ML, BID
     Route: 055
  18. XOPENEX [Concomitant]
     Active Substance: LEVALBUTEROL HYDROCHLORIDE
     Dosage: 3 ML, BID
     Route: 055
  19. ACTIGALL [Concomitant]
     Active Substance: URSODIOL
     Dosage: 1 DF, QD
     Route: 048

REACTIONS (1)
  - Infective pulmonary exacerbation of cystic fibrosis [Recovering/Resolving]

NARRATIVE: CASE EVENT DATE: 20160208
